FAERS Safety Report 5020989-X (Version None)
Quarter: 2006Q2

REPORT INFORMATION
  Report Type: 
  Country: None (occurrence: None)
  Receive Date: 20060608
  Receipt Date: 20060529
  Transmission Date: 20061013
  Serious: Yes (Other)
  Sender: FDA-Public Use
  Company Number: PHBS2006JP08032

PATIENT
  Sex: Male
  Weight: 3.165 kg

DRUGS (1)
  1. BROMOCRIPTINE MESYLATE [Suspect]
     Route: 064

REACTIONS (2)
  - DRUG EXPOSURE DURING PREGNANCY [None]
  - PREMATURE BABY [None]
